FAERS Safety Report 14952217 (Version 1)
Quarter: 2018Q2

REPORT INFORMATION
  Report Type: Spontaneous
  Country: SE (occurrence: SE)
  Receive Date: 20180530
  Receipt Date: 20180530
  Transmission Date: 20180711
  Serious: Yes (Other)
  Sender: FDA-Public Use
  Company Number: SE-PFIZER INC-2018219995

PATIENT
  Age: 71 Year
  Sex: Male

DRUGS (3)
  1. SALAZOPYRIN [Suspect]
     Active Substance: SULFASALAZINE
     Indication: COLITIS ULCERATIVE
     Dosage: 1000 MG, 2X/DAY
     Route: 048
     Dates: end: 201803
  2. FOLACIN [Concomitant]
     Active Substance: FOLIC ACID
     Dosage: UNK
  3. BEHEPAN [Concomitant]
     Active Substance: HYDROXOCOBALAMIN
     Dosage: UNK

REACTIONS (1)
  - Pancytopenia [Not Recovered/Not Resolved]

NARRATIVE: CASE EVENT DATE: 201803
